FAERS Safety Report 25260045 (Version 1)
Quarter: 2025Q2

REPORT INFORMATION
  Report Type: Spontaneous
  Country: JP (occurrence: JP)
  Receive Date: 20250501
  Receipt Date: 20250501
  Transmission Date: 20250716
  Serious: Yes (Disabling, Other)
  Sender: MERCK SHARP & DOHME LLC
  Company Number: JP-MSD-M2025-02121

PATIENT
  Age: 43 Year
  Sex: Female
  Weight: 91 kg

DRUGS (24)
  1. KEYTRUDA [Suspect]
     Active Substance: PEMBROLIZUMAB
     Indication: Triple negative breast cancer
     Dosage: DOSE DESCRIPTION : 200 MILLIGRAM, Q3W?DAILY DOSE : 9.4 MILLIGRAM?REGIMEN DOSE : 200  MILLIGRAM
     Route: 041
     Dates: start: 20250110
  2. KEYTRUDA [Suspect]
     Active Substance: PEMBROLIZUMAB
     Indication: Triple negative breast cancer
     Dosage: DOSE DESCRIPTION : 200 MILLIGRAM, Q3W?DAILY DOSE : 9.4 MILLIGRAM?REGIMEN DOSE : 200  MILLIGRAM
     Route: 041
     Dates: start: 20250210, end: 20250210
  3. CARBOPLATIN [Concomitant]
     Active Substance: CARBOPLATIN
     Indication: Triple negative breast cancer
     Dosage: DOSE DESCRIPTION : UNK
     Route: 042
     Dates: start: 20250110, end: 20250110
  4. CARBOPLATIN [Concomitant]
     Active Substance: CARBOPLATIN
     Indication: Triple negative breast cancer
     Dosage: DOSE DESCRIPTION : UNK
     Route: 042
     Dates: start: 20250120, end: 20250120
  5. CARBOPLATIN [Concomitant]
     Active Substance: CARBOPLATIN
     Indication: Triple negative breast cancer
     Dosage: DOSE DESCRIPTION : UNK
     Route: 042
     Dates: start: 20250127, end: 20250127
  6. CARBOPLATIN [Concomitant]
     Active Substance: CARBOPLATIN
     Indication: Triple negative breast cancer
     Dosage: DOSE DESCRIPTION : UNK
     Route: 042
     Dates: start: 20250210, end: 20250210
  7. CARBOPLATIN [Concomitant]
     Active Substance: CARBOPLATIN
     Indication: Triple negative breast cancer
     Dosage: DOSE DESCRIPTION : UNK
     Route: 042
     Dates: start: 20250217, end: 20250217
  8. CARBOPLATIN [Concomitant]
     Active Substance: CARBOPLATIN
     Indication: Triple negative breast cancer
     Dosage: DOSE DESCRIPTION : UNK
     Route: 042
     Dates: start: 20250225, end: 20250225
  9. CARBOPLATIN [Concomitant]
     Active Substance: CARBOPLATIN
     Indication: Triple negative breast cancer
     Dosage: DOSE DESCRIPTION : UNK
     Route: 042
     Dates: start: 20250303, end: 20250303
  10. CARBOPLATIN [Concomitant]
     Active Substance: CARBOPLATIN
     Indication: Triple negative breast cancer
     Dosage: DOSE DESCRIPTION : UNK
     Route: 042
     Dates: start: 20250310, end: 20250310
  11. CARBOPLATIN [Concomitant]
     Active Substance: CARBOPLATIN
     Indication: Triple negative breast cancer
     Dosage: DOSE DESCRIPTION : UNK
     Route: 042
     Dates: start: 20250317, end: 20250317
  12. CARBOPLATIN [Concomitant]
     Active Substance: CARBOPLATIN
     Indication: Triple negative breast cancer
     Dosage: DOSE DESCRIPTION : UNK
     Route: 042
     Dates: start: 20250324, end: 20250324
  13. CARBOPLATIN [Concomitant]
     Active Substance: CARBOPLATIN
     Indication: Triple negative breast cancer
     Dosage: DOSE DESCRIPTION : UNK
     Route: 042
     Dates: start: 20250331, end: 20250331
  14. PACLITAXEL [Concomitant]
     Active Substance: PACLITAXEL
     Dosage: DOSE DESCRIPTION : UNK
     Route: 042
     Dates: start: 20250110, end: 20250110
  15. PACLITAXEL [Concomitant]
     Active Substance: PACLITAXEL
     Dosage: DOSE DESCRIPTION : UNK
     Route: 042
     Dates: start: 20250120, end: 20250120
  16. PACLITAXEL [Concomitant]
     Active Substance: PACLITAXEL
     Dosage: DOSE DESCRIPTION : UNK
     Route: 042
     Dates: start: 20250127, end: 20250127
  17. PACLITAXEL [Concomitant]
     Active Substance: PACLITAXEL
     Dosage: DOSE DESCRIPTION : UNK
     Route: 042
     Dates: start: 20250203, end: 20250203
  18. PACLITAXEL [Concomitant]
     Active Substance: PACLITAXEL
     Dosage: DOSE DESCRIPTION : UNK
     Route: 042
     Dates: start: 20250210, end: 20250210
  19. PACLITAXEL [Concomitant]
     Active Substance: PACLITAXEL
     Dosage: DOSE DESCRIPTION : UNK
     Route: 042
     Dates: start: 20250217, end: 20250217
  20. PACLITAXEL [Concomitant]
     Active Substance: PACLITAXEL
     Dosage: DOSE DESCRIPTION : UNK
     Route: 042
     Dates: start: 20250225, end: 20250225
  21. PACLITAXEL [Concomitant]
     Active Substance: PACLITAXEL
     Dosage: DOSE DESCRIPTION : UNK
     Route: 042
     Dates: start: 20250310, end: 20250310
  22. PACLITAXEL [Concomitant]
     Active Substance: PACLITAXEL
     Dosage: DOSE DESCRIPTION : UNK
     Route: 042
     Dates: start: 20250317, end: 20250317
  23. PACLITAXEL [Concomitant]
     Active Substance: PACLITAXEL
     Dosage: DOSE DESCRIPTION : UNK
     Route: 042
     Dates: start: 20250324, end: 20250324
  24. PACLITAXEL [Concomitant]
     Active Substance: PACLITAXEL
     Dosage: DOSE DESCRIPTION : UNK
     Route: 042
     Dates: start: 20250331, end: 20250331

REACTIONS (18)
  - Immune-mediated hyperthyroidism [Recovered/Resolved with Sequelae]
  - Hypoaesthesia [Unknown]
  - Thyroiditis [Unknown]
  - Ear pruritus [Unknown]
  - Alopecia [Unknown]
  - Constipation [Unknown]
  - Pruritus [Unknown]
  - Diarrhoea [Unknown]
  - Neuropathy peripheral [Unknown]
  - Erythema [Unknown]
  - Generalised oedema [Unknown]
  - Seasonal allergy [Unknown]
  - Immune-mediated hypothyroidism [Not Recovered/Not Resolved]
  - Palpitations [Unknown]
  - Nausea [Recovering/Resolving]
  - Rhinorrhoea [Unknown]
  - Epistaxis [Unknown]
  - Dyspnoea [Unknown]

NARRATIVE: CASE EVENT DATE: 20250101
